FAERS Safety Report 23207695 (Version 2)
Quarter: 2023Q4

REPORT INFORMATION
  Report Type: Spontaneous
  Country: CN (occurrence: CN)
  Receive Date: 20231120
  Receipt Date: 20231215
  Transmission Date: 20240109
  Serious: Yes (Other)
  Sender: FDA-Public Use
  Company Number: CN-BoehringerIngelheim-2023-BI-273001

PATIENT
  Age: 46 Year
  Sex: Female

DRUGS (1)
  1. GILOTRIF [Suspect]
     Active Substance: AFATINIB
     Indication: Lung adenocarcinoma
     Route: 048

REACTIONS (4)
  - Small cell carcinoma [Unknown]
  - Neurone-specific enolase increased [Unknown]
  - Pleural effusion [Recovering/Resolving]
  - Pulmonary mass [Unknown]
